FAERS Safety Report 5484965-5 (Version None)
Quarter: 2007Q4

REPORT INFORMATION
  Report Type: 
  Country: None (occurrence: None)
  Receive Date: 20071010
  Receipt Date: 20071001
  Transmission Date: 20080405
  Serious: Yes (Other)
  Sender: FDA-Public Use
  Company Number: 6038471

PATIENT
  Age: 85 Year
  Sex: Female

DRUGS (5)
  1. EMCOR                      (BISOPROLOL FUMARATE) [Suspect]
     Indication: DRUG USE FOR UNKNOWN INDICATION
     Dosage: 7,5 MG (7,5 MG, 1 IN 1 D) ORAL; 5 MG (5 MG, 1 IN 1 D) ORAL
     Route: 048
     Dates: end: 20070827
  2. EMCOR                      (BISOPROLOL FUMARATE) [Suspect]
     Indication: DRUG USE FOR UNKNOWN INDICATION
     Dosage: 7,5 MG (7,5 MG, 1 IN 1 D) ORAL; 5 MG (5 MG, 1 IN 1 D) ORAL
     Route: 048
     Dates: start: 20070903, end: 20070907
  3. EMCOR                      (BISOPROLOL FUMARATE) [Suspect]
     Indication: DRUG USE FOR UNKNOWN INDICATION
     Dosage: 7,5 MG (7,5 MG, 1 IN 1 D) ORAL; 5 MG (5 MG, 1 IN 1 D) ORAL
     Route: 048
     Dates: start: 20070908
  4. ASPIRIN [Concomitant]
  5. CHLORPHENIRAMINE MALEATE [Concomitant]

REACTIONS (3)
  - LIP SWELLING [None]
  - PRURITUS [None]
  - RASH [None]
